FAERS Safety Report 17027681 (Version 1)
Quarter: 2019Q4

REPORT INFORMATION
  Report Type: Spontaneous
  Country: US (occurrence: US)
  Receive Date: 20191010
  Receipt Date: 20191010
  Transmission Date: 20200122
  Serious: No
  Sender: FDA-Public Use
  Company Number: None

PATIENT
  Age: 63 Year
  Sex: Female

DRUGS (1)
  1. VERZENIO [Suspect]
     Active Substance: ABEMACICLIB
     Indication: BREAST CANCER
     Route: 048
     Dates: start: 20190814

REACTIONS (4)
  - Hypoaesthesia oral [None]
  - Hypoaesthesia [None]
  - Stomatitis [None]
  - Fatigue [None]

NARRATIVE: CASE EVENT DATE: 20190923
